FAERS Safety Report 8405744-2 (Version None)
Quarter: 2012Q2

REPORT INFORMATION
  Report Type: 
  Country: None (occurrence: None)
  Receive Date: 20120530
  Receipt Date: 20120530
  Transmission Date: 20120825
  Serious: Yes (Other)
  Sender: FDA-Public Use
  Company Number: None

PATIENT
  Age: 76 Year
  Sex: Female
  Weight: 58.9676 kg

DRUGS (2)
  1. SPIRIVA [Suspect]
     Indication: CHRONIC OBSTRUCTIVE PULMONARY DISEASE
     Dosage: 1 CAPSULE ONCE A DAY INHALER
     Route: 055
     Dates: start: 20110201, end: 20120201
  2. RESTASIS [Suspect]
     Indication: DRY EYE
     Dosage: 1 DROP TWICE A DAY BOTH EYES
     Dates: start: 20110701, end: 20120201

REACTIONS (5)
  - DRY EYE [None]
  - EYE PAIN [None]
  - DRY MOUTH [None]
  - BURNING SENSATION [None]
  - SKIN EXFOLIATION [None]
